FAERS Safety Report 5835345-1 (Version None)
Quarter: 2008Q3

REPORT INFORMATION
  Report Type: 
  Country: None (occurrence: None)
  Receive Date: 20080805
  Receipt Date: 20080805
  Transmission Date: 20090109
  Serious: Yes (Other)
  Sender: FDA-Public Use
  Company Number: None

PATIENT
  Age: 43 Year
  Sex: Female
  Weight: 62.1428 kg

DRUGS (1)
  1. DETROL LA [Suspect]

REACTIONS (3)
  - AMNESIA [None]
  - CONFUSIONAL STATE [None]
  - LOSS OF EMPLOYMENT [None]
